FAERS Safety Report 4566301-1 (Version None)
Quarter: 2005Q1

REPORT INFORMATION
  Report Type: 
  Country: None (occurrence: None)
  Receive Date: 20050126
  Receipt Date: 20050126
  Transmission Date: 20050727
  Serious: Yes (Hospitalization)
  Sender: FDA-Public Use
  Company Number: None

PATIENT
  Age: 39 Year
  Sex: Female

DRUGS (5)
  1. AVELOX [Suspect]
     Indication: ACUTE SINUSITIS
     Dates: start: 20041222, end: 20050105
  2. AVELOX [Suspect]
     Indication: CONDITION AGGRAVATED
     Dates: start: 20041222, end: 20050105
  3. SUDAFED 12 HOUR [Concomitant]
  4. FLONASE [Concomitant]
  5. TYLENOL [Concomitant]

REACTIONS (2)
  - HOMICIDAL IDEATION [None]
  - MOOD SWINGS [None]
